FAERS Safety Report 6423970-9 (Version None)
Quarter: 2009Q4

REPORT INFORMATION
  Report Type: 
  Country: None (occurrence: None)
  Receive Date: 20091102
  Receipt Date: 20091021
  Transmission Date: 20100525
  Serious: Yes (Hospitalization)
  Sender: FDA-Public Use
  Company Number: PHHO2009US12986

PATIENT
  Sex: Male
  Weight: 85 kg

DRUGS (10)
  1. RAD 666 RAD+TAB [Suspect]
     Indication: MANTLE CELL LYMPHOMA REFRACTORY
     Dosage: 5 MG DAILY
     Route: 048
     Dates: start: 20090611, end: 20091012
  2. ADVAIR DISKUS 100/50 [Concomitant]
  3. AMMONIUM CHLORIDE [Concomitant]
     Indication: CONSTIPATION
  4. NEURONTIN [Concomitant]
  5. MULTIVITAMIN [Concomitant]
  6. OXYCODONE [Concomitant]
     Indication: PAIN
  7. PENICILLIN V POTASSIUM [Concomitant]
  8. PROTONIX [Concomitant]
  9. TYLENOL (CAPLET) [Concomitant]
     Indication: PAIN
  10. TYLENOL PM, EXTRA STRENGTH [Concomitant]

REACTIONS (7)
  - DEEP VEIN THROMBOSIS [None]
  - LYMPH NODE PAIN [None]
  - LYMPHADENOPATHY [None]
  - MALIGNANT NEOPLASM PROGRESSION [None]
  - OEDEMA GENITAL [None]
  - OEDEMA PERIPHERAL [None]
  - PULMONARY EMBOLISM [None]
